FAERS Safety Report 7596218-X (Version None)
Quarter: 2011Q3

REPORT INFORMATION
  Report Type: 
  Country: None (occurrence: None)
  Receive Date: 20110707
  Receipt Date: 20110623
  Transmission Date: 20111222
  Serious: Yes (Other)
  Sender: FDA-Public Use
  Company Number: US-WATSON-2011-09316

PATIENT
  Sex: Female
  Weight: 65.76 kg

DRUGS (2)
  1. TRIAMTERENE AND HYDROCHLOROTHIAZIDE [Suspect]
     Indication: HYPERTENSION
     Dosage: TOOK 2 DOSES TOTAL; 1/2 TAB DAILY AT  6PM
     Route: 048
     Dates: start: 20101213, end: 20101214
  2. SYNTHROID [Concomitant]
     Indication: HYPOTHYROIDISM
     Dosage: DAILY (FOR MANY YEARS)
     Route: 048

REACTIONS (8)
  - MUSCLE SPASMS [None]
  - HYPERHIDROSIS [None]
  - SLEEP DISORDER [None]
  - HEAD INJURY [None]
  - COLD SWEAT [None]
  - ASTHENIA [None]
  - LOSS OF CONSCIOUSNESS [None]
  - FALL [None]
